FAERS Safety Report 17510578 (Version 1)
Quarter: 2020Q1

REPORT INFORMATION
  Report Type: Report from Study
  Country: BR (occurrence: BR)
  Receive Date: 20200306
  Receipt Date: 20200306
  Transmission Date: 20200409
  Serious: Yes (Other)
  Sender: FDA-Public Use
  Company Number: NVSC2020BR060091

PATIENT
  Age: 57 Year
  Sex: Female

DRUGS (3)
  1. COSENTYX [Suspect]
     Active Substance: SECUKINUMAB
     Dosage: 300 UNK
     Route: 065
     Dates: start: 202001
  2. COSENTYX [Suspect]
     Active Substance: SECUKINUMAB
     Indication: PSORIATIC ARTHROPATHY
     Dosage: 150 MG
     Route: 065
     Dates: start: 20190605
  3. COSENTYX [Suspect]
     Active Substance: SECUKINUMAB
     Dosage: 300 UNK
     Route: 065
     Dates: start: 20190814

REACTIONS (9)
  - Hair growth abnormal [Unknown]
  - Nasal injury [Recovering/Resolving]
  - Respiratory disorder [Unknown]
  - Sinusitis [Recovering/Resolving]
  - Alopecia [Not Recovered/Not Resolved]
  - Headache [Recovering/Resolving]
  - Dyspnoea [Unknown]
  - Secretion discharge [Unknown]
  - Urinary tract infection [Recovered/Resolved]

NARRATIVE: CASE EVENT DATE: 201908
